FAERS Safety Report 11702804 (Version 1)
Quarter: 2015Q4

REPORT INFORMATION
  Report Type: Spontaneous
  Country: US (occurrence: US)
  Receive Date: 20151105
  Receipt Date: 20151105
  Transmission Date: 20160304
  Serious: No
  Sender: FDA-Public Use
  Company Number: US-ENDO PHARMACEUTICALS INC.-2015-001726

PATIENT
  Sex: Female
  Weight: 44.04 kg

DRUGS (2)
  1. OPIUM. [Concomitant]
     Active Substance: OPIUM
     Indication: GASTRIC HYPERMOTILITY
  2. MORPHINE SULFATE ER 15MG [Suspect]
     Active Substance: MORPHINE SULFATE
     Indication: PAIN
     Route: 048

REACTIONS (1)
  - Medication residue present [Not Recovered/Not Resolved]
